FAERS Safety Report 23230481 (Version 5)
Quarter: 2024Q1

REPORT INFORMATION
  Report Type: Spontaneous
  Country: ES (occurrence: ES)
  Receive Date: 20231127
  Receipt Date: 20240307
  Transmission Date: 20240409
  Serious: Yes (Life-Threatening, Hospitalization, Other)
  Sender: FDA-Public Use
  Company Number: ES-BAXTER-2023BAX024551

PATIENT
  Age: 58 Year
  Sex: Male
  Weight: 81.4 kg

DRUGS (81)
  1. CYCLOPHOSPHAMIDE [Suspect]
     Active Substance: CYCLOPHOSPHAMIDE
     Indication: Diffuse large B-cell lymphoma
     Dosage: 750 MG/M2, EVERY 3 WEEKS
     Route: 042
     Dates: start: 20230313
  2. DOXORUBICIN [Suspect]
     Active Substance: DOXORUBICIN
     Indication: Diffuse large B-cell lymphoma
     Dosage: 50 MG/M2, EVERY 3 WEEKS
     Route: 042
     Dates: start: 20230313
  3. EPCORITAMAB [Suspect]
     Active Substance: EPCORITAMAB
     Indication: Diffuse large B-cell lymphoma
     Dosage: 48 MG CYCLES 2-4 DAYS 1, 8 AND 15 WEEKLY, EVERY 1 WEEKS
     Route: 058
     Dates: start: 20230313, end: 20230522
  4. PREDNISONE [Suspect]
     Active Substance: PREDNISONE
     Indication: Diffuse large B-cell lymphoma
     Dosage: 100 MG DAYS 1-5 EVERY 3 WEEKS, EVERY 1 DAYS
     Route: 048
     Dates: start: 20230314
  5. RITUXIMAB [Suspect]
     Active Substance: RITUXIMAB
     Indication: Diffuse large B-cell lymphoma
     Dosage: 375 MG/M2, EVERY 3 WEEKS
     Route: 042
     Dates: start: 20230313
  6. SULFAMETHOXAZOLE [Suspect]
     Active Substance: SULFAMETHOXAZOLE
     Indication: Product used for unknown indication
     Dosage: 800 MG, 3/WEEKS ROUTE OF ADMIN (FREE TEXT): UNKNOWN ROUTE
     Route: 065
     Dates: start: 20230321
  7. SULFAMETHOXAZOLE [Suspect]
     Active Substance: SULFAMETHOXAZOLE
     Indication: Product used for unknown indication
     Dosage: 800 MG, 3/WEEKS ROUTE OF ADMIN (FREE TEXT): UNKNOWN ROUTE
     Route: 065
     Dates: start: 20230321
  8. SULFAMETHOXAZOLE [Suspect]
     Active Substance: SULFAMETHOXAZOLE
     Indication: Product used for unknown indication
     Dosage: 800 MG, 3/WEEKS ROUTE OF ADMIN (FREE TEXT): UNKNOWN ROUTE
     Route: 065
     Dates: start: 20230321
  9. SULFAMETHOXAZOLE [Suspect]
     Active Substance: SULFAMETHOXAZOLE
     Indication: Product used for unknown indication
     Dosage: 800 MG, 3/WEEKS ROUTE OF ADMIN (FREE TEXT): UNKNOWN ROUTE
     Route: 065
     Dates: start: 20230321
  10. SULFAMETHOXAZOLE [Suspect]
     Active Substance: SULFAMETHOXAZOLE
     Indication: Prophylaxis
     Dosage: 800 MG, 3/WEEKS ROUTE OF ADMIN (FREE TEXT): UNKNOWN ROUTE
     Route: 065
     Dates: start: 20230321
  11. SULFAMETHOXAZOLE [Suspect]
     Active Substance: SULFAMETHOXAZOLE
     Dosage: 800 MG, 3/WEEKS ROUTE OF ADMIN (FREE TEXT): UNKNOWN ROUTE
     Route: 065
     Dates: start: 20230321
  12. SULFAMETHOXAZOLE [Suspect]
     Active Substance: SULFAMETHOXAZOLE
     Dosage: 800 MG, 3/WEEKS ROUTE OF ADMIN (FREE TEXT): UNKNOWN ROUTE
     Route: 065
     Dates: start: 20230321
  13. SULFAMETHOXAZOLE [Suspect]
     Active Substance: SULFAMETHOXAZOLE
     Dosage: 800 MG, 3/WEEKS ROUTE OF ADMIN (FREE TEXT): UNKNOWN ROUTE
     Route: 065
     Dates: start: 20230321
  14. SULFAMETHOXAZOLE [Suspect]
     Active Substance: SULFAMETHOXAZOLE
     Dosage: 800 MG, 3/WEEKS ROUTE OF ADMIN (FREE TEXT): UNKNOWN ROUTE
     Route: 065
     Dates: start: 20230321
  15. SULFAMETHOXAZOLE [Suspect]
     Active Substance: SULFAMETHOXAZOLE
     Dosage: 800 MG, 3/WEEKS ROUTE OF ADMIN (FREE TEXT): UNKNOWN ROUTE
     Route: 065
     Dates: start: 20230321
  16. SULFAMETHOXAZOLE [Suspect]
     Active Substance: SULFAMETHOXAZOLE
     Dosage: 800 MG, 3/WEEKS ROUTE OF ADMIN (FREE TEXT): UNKNOWN ROUTE
     Route: 065
     Dates: start: 20230321
  17. SULFAMETHOXAZOLE [Suspect]
     Active Substance: SULFAMETHOXAZOLE
     Dosage: 800 MG, 3/WEEKS ROUTE OF ADMIN (FREE TEXT): UNKNOWN ROUTE
     Route: 065
     Dates: start: 20230321
  18. SULFAMETHOXAZOLE [Suspect]
     Active Substance: SULFAMETHOXAZOLE
     Dosage: 800 MG, 3/WEEKS ROUTE OF ADMIN (FREE TEXT): UNKNOWN ROUTE
     Route: 065
     Dates: start: 20230321
  19. SULFAMETHOXAZOLE [Suspect]
     Active Substance: SULFAMETHOXAZOLE
     Dosage: 800 MG, 3/WEEKS ROUTE OF ADMIN (FREE TEXT): UNKNOWN ROUTE
     Route: 065
     Dates: start: 20230321
  20. SULFAMETHOXAZOLE [Suspect]
     Active Substance: SULFAMETHOXAZOLE
     Dosage: 800 MG, 3/WEEKS ROUTE OF ADMIN (FREE TEXT): UNKNOWN ROUTE
     Route: 065
     Dates: start: 20230321
  21. SULFAMETHOXAZOLE [Suspect]
     Active Substance: SULFAMETHOXAZOLE
     Dosage: 800 MG, 3/WEEKS ROUTE OF ADMIN (FREE TEXT): UNKNOWN ROUTE
     Route: 065
     Dates: start: 20230321
  22. SULFAMETHOXAZOLE [Suspect]
     Active Substance: SULFAMETHOXAZOLE
     Dosage: 800 MG, 3/WEEKS ROUTE OF ADMIN (FREE TEXT): UNKNOWN ROUTE
     Route: 065
     Dates: start: 20230321
  23. SULFAMETHOXAZOLE [Suspect]
     Active Substance: SULFAMETHOXAZOLE
     Dosage: 800 MG, 3/WEEKS ROUTE OF ADMIN (FREE TEXT): UNKNOWN ROUTE
     Route: 065
     Dates: start: 20230321
  24. SULFAMETHOXAZOLE [Suspect]
     Active Substance: SULFAMETHOXAZOLE
     Dosage: 800 MG, 3/WEEKS ROUTE OF ADMIN (FREE TEXT): UNKNOWN ROUTE
     Route: 065
     Dates: start: 20230321
  25. SULFAMETHOXAZOLE [Suspect]
     Active Substance: SULFAMETHOXAZOLE
     Dosage: 800 MG, 3/WEEKS ROUTE OF ADMIN (FREE TEXT): UNKNOWN ROUTE
     Route: 065
     Dates: start: 20230321
  26. SULFAMETHOXAZOLE [Suspect]
     Active Substance: SULFAMETHOXAZOLE
     Dosage: 800 MG, 3/WEEKS ROUTE OF ADMIN (FREE TEXT): UNKNOWN ROUTE
     Route: 065
     Dates: start: 20230321
  27. VINCRISTINE [Suspect]
     Active Substance: VINCRISTINE
     Indication: Diffuse large B-cell lymphoma
     Dosage: 1.4 MG/M2, EVERY 3 WEEKS
     Route: 042
     Dates: start: 20230313
  28. ACETYLSALICYLIC ACID KRKA [Concomitant]
     Indication: Angina pectoris
     Dosage: 100 MG, EVERY 1 DAYS (START DATE: 2019) ROUTE OF ADMIN (FREE TEXT): UNKNOWN ROUTE
     Route: 065
  29. ACETYLSALICYLIC ACID KRKA [Concomitant]
     Indication: Hypertension
     Dosage: 100 MG, EVERY 1 DAYS (START DATE: 2019) ROUTE OF ADMIN (FREE TEXT): UNKNOWN ROUTE
     Route: 065
  30. ACETYLSALICYLIC ACID KRKA [Concomitant]
     Dosage: 100 MG, EVERY 1 DAYS (START DATE: 2019) ROUTE OF ADMIN (FREE TEXT): UNKNOWN ROUTE
     Route: 065
  31. ACETYLSALICYLIC ACID KRKA [Concomitant]
     Dosage: 100 MG, EVERY 1 DAYS (START DATE: 2019) ROUTE OF ADMIN (FREE TEXT): UNKNOWN ROUTE
     Route: 065
  32. ACETYLSALICYLIC ACID KRKA [Concomitant]
     Dosage: 100 MG, EVERY 1 DAYS (START DATE: 2019) ROUTE OF ADMIN (FREE TEXT): UNKNOWN ROUTE
     Route: 065
  33. ACETYLSALICYLIC ACID KRKA [Concomitant]
     Dosage: 100 MG, EVERY 1 DAYS (START DATE: 2019) ROUTE OF ADMIN (FREE TEXT): UNKNOWN ROUTE
     Route: 065
  34. ACETYLSALICYLIC ACID KRKA [Concomitant]
     Dosage: 100 MG, EVERY 1 DAYS (START DATE: 2019) ROUTE OF ADMIN (FREE TEXT): UNKNOWN ROUTE
     Route: 065
  35. ACETYLSALICYLIC ACID KRKA [Concomitant]
     Dosage: 100 MG, EVERY 1 DAYS (START DATE: 2019) ROUTE OF ADMIN (FREE TEXT): UNKNOWN ROUTE
     Route: 065
  36. ACETYLSALICYLIC ACID KRKA [Concomitant]
     Dosage: 100 MG, EVERY 1 DAYS (START DATE: 2019) ROUTE OF ADMIN (FREE TEXT): UNKNOWN ROUTE
     Route: 065
  37. ACETYLSALICYLIC ACID KRKA [Concomitant]
     Dosage: 100 MG, EVERY 1 DAYS (START DATE: 2019) ROUTE OF ADMIN (FREE TEXT): UNKNOWN ROUTE
     Route: 065
  38. ACETYLSALICYLIC ACID KRKA [Concomitant]
     Dosage: 100 MG, EVERY 1 DAYS (START DATE: 2019) ROUTE OF ADMIN (FREE TEXT): UNKNOWN ROUTE
     Route: 065
  39. ACETYLSALICYLIC ACID KRKA [Concomitant]
     Dosage: 100 MG, EVERY 1 DAYS (START DATE: 2019) ROUTE OF ADMIN (FREE TEXT): UNKNOWN ROUTE
     Route: 065
  40. ACETYLSALICYLIC ACID KRKA [Concomitant]
     Dosage: 100 MG, EVERY 1 DAYS (START DATE: 2019) ROUTE OF ADMIN (FREE TEXT): UNKNOWN ROUTE
     Route: 065
  41. ACETYLSALICYLIC ACID KRKA [Concomitant]
     Dosage: 100 MG, EVERY 1 DAYS (START DATE: 2019) ROUTE OF ADMIN (FREE TEXT): UNKNOWN ROUTE
     Route: 065
  42. ACETYLSALICYLIC ACID KRKA [Concomitant]
     Dosage: 100 MG, EVERY 1 DAYS (START DATE: 2019) ROUTE OF ADMIN (FREE TEXT): UNKNOWN ROUTE
     Route: 065
  43. ACETYLSALICYLIC ACID KRKA [Concomitant]
     Dosage: 100 MG, EVERY 1 DAYS (START DATE: 2019) ROUTE OF ADMIN (FREE TEXT): UNKNOWN ROUTE
     Route: 065
  44. ACETYLSALICYLIC ACID KRKA [Concomitant]
     Dosage: 100 MG, EVERY 1 DAYS (START DATE: 2019) ROUTE OF ADMIN (FREE TEXT): UNKNOWN ROUTE
     Route: 065
  45. ACETYLSALICYLIC ACID KRKA [Concomitant]
     Dosage: 100 MG, EVERY 1 DAYS (START DATE: 2019) ROUTE OF ADMIN (FREE TEXT): UNKNOWN ROUTE
     Route: 065
  46. ACYCLOVIR [Concomitant]
     Active Substance: ACYCLOVIR
     Indication: Infection prophylaxis
     Dosage: 800 MG, EVERY 1 DAYS ROUTE OF ADMIN (FREE TEXT): UNKNOWN ROUTE
     Route: 065
     Dates: start: 20230331
  47. ACYCLOVIR [Concomitant]
     Active Substance: ACYCLOVIR
     Dosage: UNK
     Route: 065
     Dates: start: 20230331
  48. ASPIRIN [Concomitant]
     Active Substance: ASPIRIN
     Indication: Angina pectoris
     Dosage: 100 MG, EVERY 1 DAYS (START DATE: 2019) ROUTE OF ADMIN (FREE TEXT): UNKNOWN ROUTE
     Route: 065
  49. ASPIRIN [Concomitant]
     Active Substance: ASPIRIN
     Indication: Hypertension
     Dosage: 100 MG, EVERY 1 DAYS (START DATE: 2019) ROUTE OF ADMIN (FREE TEXT): UNKNOWN ROUTE
     Route: 065
  50. ASPIRIN [Concomitant]
     Active Substance: ASPIRIN
     Dosage: 100 MG, EVERY 1 DAYS (START DATE: 2019) ROUTE OF ADMIN (FREE TEXT): UNKNOWN ROUTE
     Route: 065
  51. ASPIRIN\SODIUM BICARBONATE [Concomitant]
     Active Substance: ASPIRIN\SODIUM BICARBONATE
     Indication: Angina pectoris
     Dosage: 100 MG, EVERY 1 DAYS (START DATE: 2019) ROUTE OF ADMIN (FREE TEXT): UNKNOWN ROUTE
     Route: 065
  52. ASPIRIN\SODIUM BICARBONATE [Concomitant]
     Active Substance: ASPIRIN\SODIUM BICARBONATE
     Indication: Hypertension
     Dosage: 100 MG, EVERY 1 DAYS (START DATE: 2019) ROUTE OF ADMIN (FREE TEXT): UNKNOWN ROUTE
     Route: 065
  53. ATORVASTATIN [Concomitant]
     Active Substance: ATORVASTATIN
     Indication: Hypertension
     Dosage: 40 MG
     Route: 065
     Dates: start: 20230404
  54. ATORVASTATINA URQUIMA [Concomitant]
     Indication: Angina pectoris
     Dosage: 40 MG
     Route: 065
     Dates: start: 20230404
  55. ATORVASTATINA URQUIMA [Concomitant]
     Indication: Hypertension
  56. Miol [Concomitant]
     Indication: Gastritis prophylaxis
     Dosage: 20 MG, EVERY 1 DAYS ROUTE OF ADMIN (FREE TEXT): UNKNOWN ROUTE
     Route: 065
     Dates: start: 20230321
  57. Miol [Concomitant]
     Dosage: UNK
     Route: 065
     Dates: start: 20230321
  58. RAMIPRIL UR [Concomitant]
     Indication: Hypertension
     Dosage: 10 MG, EVERY 1 DAYS ROUTE OF ADMIN (FREE TEXT): UNKNOWN ROUTE
     Route: 065
  59. RAMIPRIL UR [Concomitant]
     Dosage: UNK
     Route: 065
  60. TRIMETHOPRIM NTN [Concomitant]
     Dosage: 160 MG, 3/WEEKS ROUTE OF ADMIN (FREE TEXT): UNKNOWN ROUTE
     Route: 065
     Dates: start: 20230321
  61. TRIMETHOPRIM NTN [Concomitant]
     Dosage: 160 MG, 3/WEEKS ROUTE OF ADMIN (FREE TEXT): UNKNOWN ROUTE
     Route: 065
     Dates: start: 20230321
  62. TRIMETHOPRIM NTN [Concomitant]
     Dosage: 160 MG, 3/WEEKS ROUTE OF ADMIN (FREE TEXT): UNKNOWN ROUTE
     Route: 065
     Dates: start: 20230321
  63. TRIMETHOPRIM NTN [Concomitant]
     Dosage: 160 MG, Q3W
     Route: 065
     Dates: start: 20230321
  64. TRIMETHOPRIM NTN [Concomitant]
     Dosage: 160 MG, Q3W
     Route: 065
     Dates: start: 20230321
  65. TRIMETHOPRIM NTN [Concomitant]
     Indication: Prophylaxis
     Dosage: 160 MG, 3/WEEKS ROUTE OF ADMIN (FREE TEXT): UNKNOWN ROUTE
     Route: 065
     Dates: start: 20230321
  66. TRIMETHOPRIM NTN [Concomitant]
     Dosage: 160 MG, 3/WEEKS ROUTE OF ADMIN (FREE TEXT): UNKNOWN ROUTE
     Route: 065
     Dates: start: 20230321
  67. TRIMETHOPRIM NTN [Concomitant]
     Dosage: 160 MG, 3/WEEKS ROUTE OF ADMIN (FREE TEXT): UNKNOWN ROUTE
     Route: 065
     Dates: start: 20230321
  68. TRIMETHOPRIM NTN [Concomitant]
     Dosage: 160 MG, 3/WEEKS ROUTE OF ADMIN (FREE TEXT): UNKNOWN ROUTE
     Route: 065
     Dates: start: 20230321
  69. TRIMETHOPRIM NTN [Concomitant]
     Dosage: 160 MG, 3/WEEKS ROUTE OF ADMIN (FREE TEXT): UNKNOWN ROUTE
     Route: 065
     Dates: start: 20230321
  70. TRIMETHOPRIM NTN [Concomitant]
     Dosage: 160 MG, 3/WEEKS ROUTE OF ADMIN (FREE TEXT): UNKNOWN ROUTE
     Route: 065
     Dates: start: 20230321
  71. TRIMETHOPRIM NTN [Concomitant]
     Dosage: 160 MG, 3/WEEKS ROUTE OF ADMIN (FREE TEXT): UNKNOWN ROUTE
     Route: 065
     Dates: start: 20230321
  72. TRIMETHOPRIM NTN [Concomitant]
     Dosage: 160 MG, 3/WEEKS ROUTE OF ADMIN (FREE TEXT): UNKNOWN ROUTE
     Route: 065
     Dates: start: 20230321
  73. TRIMETHOPRIM NTN [Concomitant]
     Dosage: 160 MG, 3/WEEKS ROUTE OF ADMIN (FREE TEXT): UNKNOWN ROUTE
     Route: 065
     Dates: start: 20230321
  74. TRIMETHOPRIM NTN [Concomitant]
     Dosage: 160 MG, 3/WEEKS ROUTE OF ADMIN (FREE TEXT): UNKNOWN ROUTE
     Route: 065
     Dates: start: 20230321
  75. TRIMETHOPRIM NTN [Concomitant]
     Dosage: 160 MG, 3/WEEKS ROUTE OF ADMIN (FREE TEXT): UNKNOWN ROUTE
     Route: 065
     Dates: start: 20230321
  76. TRIMETHOPRIM NTN [Concomitant]
     Dosage: 160 MG, 3/WEEKS ROUTE OF ADMIN (FREE TEXT): UNKNOWN ROUTE
     Route: 065
     Dates: start: 20230321
  77. TRIMETHOPRIM NTN [Concomitant]
     Dosage: 160 MG, 3/WEEKS ROUTE OF ADMIN (FREE TEXT): UNKNOWN ROUTE
     Route: 065
     Dates: start: 20230321
  78. TRIMETHOPRIM NTN [Concomitant]
     Dosage: 160 MG, 3/WEEKS ROUTE OF ADMIN (FREE TEXT): UNKNOWN ROUTE
     Route: 065
     Dates: start: 20230321
  79. TRIMETHOPRIM NTN [Concomitant]
     Dosage: 160 MG, 3/WEEKS ROUTE OF ADMIN (FREE TEXT): UNKNOWN ROUTE
     Route: 065
     Dates: start: 20230321
  80. TRIMETHOPRIM NTN [Concomitant]
     Dosage: 160 MG, 3/WEEKS ROUTE OF ADMIN (FREE TEXT): UNKNOWN ROUTE
     Route: 065
     Dates: start: 20230321
  81. TRIMETHOPRIM NTN [Concomitant]
     Dosage: 160 MG, 3/WEEKS ROUTE OF ADMIN (FREE TEXT): UNKNOWN ROUTE
     Route: 065
     Dates: start: 20230321

REACTIONS (1)
  - Febrile neutropenia [Recovered/Resolved]

NARRATIVE: CASE EVENT DATE: 20230602
